FAERS Safety Report 14936915 (Version 2)
Quarter: 2018Q3

REPORT INFORMATION
  Report Type: Spontaneous
  Country: GB (occurrence: GB)
  Receive Date: 20180525
  Receipt Date: 20180906
  Transmission Date: 20181010
  Serious: Yes (Other)
  Sender: FDA-Public Use
  Company Number: GB-ASTRAZENECA-2018SE65599

PATIENT
  Age: 75 Year
  Sex: Female
  Weight: 73 kg

DRUGS (10)
  1. BISOPROLOL [Concomitant]
     Active Substance: BISOPROLOL
     Dates: start: 20171005
  2. CLOPIDOGREL [Concomitant]
     Active Substance: CLOPIDOGREL BISULFATE
     Dosage: TO REDUCE RISK OF HEART ATTACK AND ST...
     Dates: start: 20171005
  3. GABAPENTIN. [Concomitant]
     Active Substance: GABAPENTIN
     Dosage: TAKE ONE CAPSULE AT NIGHT AND INCREASE BY I CAPSUL...
     Dates: start: 20180418
  4. RAMIPRIL. [Concomitant]
     Active Substance: RAMIPRIL
     Dates: start: 20171005
  5. AMLODIPINE [Concomitant]
     Active Substance: AMLODIPINE BESYLATE
     Dates: start: 20171005
  6. TICAGRELOR. [Suspect]
     Active Substance: TICAGRELOR
     Route: 048
     Dates: start: 20180418
  7. GLYCERYL TRINITRATE [Concomitant]
     Active Substance: NITROGLYCERIN
     Dosage: 1.0DF UNKNOWN
     Dates: start: 20130123
  8. COSMOCOL [Concomitant]
     Dosage: 2 SACHETS DAILY ADJUST DOSE TO MAINTAIN REGULAR...
     Dates: start: 20180503
  9. ACETYLSALICYLIC ACID [Concomitant]
     Active Substance: ASPIRIN
     Dates: start: 20171005
  10. ATORVASTATIN [Concomitant]
     Active Substance: ATORVASTATIN
     Indication: HYPERCHOLESTEROLAEMIA
     Dates: start: 20171005

REACTIONS (3)
  - Abdominal pain [Recovered/Resolved]
  - Dyspnoea [Recovered/Resolved]
  - Mucous stools [Recovered/Resolved]

NARRATIVE: CASE EVENT DATE: 20180503
